FAERS Safety Report 7404382-8 (Version None)
Quarter: 2011Q2

REPORT INFORMATION
  Report Type: 
  Country: None (occurrence: None)
  Receive Date: 20110408
  Receipt Date: 20090213
  Transmission Date: 20111010
  Serious: Yes (Death, Hospitalization, Other)
  Sender: FDA-Public Use
  Company Number: US-BAYER-200912861NA

PATIENT
  Age: 64 Year
  Sex: Male
  Weight: 113.38 kg

DRUGS (39)
  1. ZINACEF [Concomitant]
     Dosage: 1.5 GM
  2. HEPARIN [Concomitant]
     Dosage: 44000 U, UNK
     Route: 042
     Dates: start: 20070118, end: 20070118
  3. CIPRO [Concomitant]
     Dosage: UNK
     Dates: start: 20070205
  4. SUCCINYLCHOLINE CHLORIDE [Concomitant]
     Dosage: UNK
     Route: 042
     Dates: start: 20070118, end: 20070118
  5. DESFLURANE [Concomitant]
     Dosage: UNK
     Dates: start: 20070118, end: 20070118
  6. LASIX [Concomitant]
     Dosage: 80 MG, QD
  7. HEPARIN [Concomitant]
  8. VERSED [Concomitant]
     Dosage: UNK
     Route: 042
     Dates: start: 20070118, end: 20070118
  9. VITAMIN B-12 [Concomitant]
     Dosage: 500 MCG/24HR, UNK
     Route: 048
  10. PLASMA [Concomitant]
     Dosage: 2 U, UNK
     Route: 042
     Dates: start: 20070118, end: 20070118
  11. PLATELETS [Concomitant]
     Dosage: UNK
     Route: 042
     Dates: start: 20070118, end: 20070118
  12. FENTANYL [Concomitant]
     Dosage: UNK
     Route: 042
     Dates: start: 20070118, end: 20070118
  13. PRILOSEC [Concomitant]
     Dosage: 20 MG, QD
     Route: 048
  14. NITROGLYCERIN [Concomitant]
     Dosage: 0.4 MG, PRN
     Route: 060
  15. TRASYLOL [Suspect]
     Dosage: 50ML/HR
     Route: 042
     Dates: end: 20070118
  16. PROTAMINE SULFATE [Concomitant]
     Dosage: 500 MG, UNK
     Route: 042
     Dates: start: 20070118, end: 20070118
  17. POTASSIUM CHLORIDE [Concomitant]
     Dosage: UNK
     Route: 042
     Dates: start: 20070118, end: 20070118
  18. ISOVUE-128 [Concomitant]
     Dosage: 100 ML, UNK
     Dates: start: 20061128, end: 20061128
  19. NEOMYCIN [Concomitant]
     Dosage: 500 MG, UNK
  20. LISINOPRIL [Concomitant]
     Dosage: 10 MG, QD
     Route: 048
  21. INDERAL [Concomitant]
     Dosage: 10 MG, BID
     Route: 048
  22. ACETYLSALICYLIC ACID SRT [Concomitant]
     Dosage: 325 MG, BID AS NEEDED
     Route: 048
  23. TRASYLOL [Suspect]
     Indication: ECHOCARDIOGRAM
     Dosage: 200 ML, UNK
     Route: 042
  24. NEO-SYNEPHRINOL [Concomitant]
     Dosage: UNK
     Route: 042
     Dates: start: 20070118, end: 20070118
  25. PROPOFOL [Concomitant]
     Dosage: UNK
     Dates: start: 20070118, end: 20070118
  26. GLUCOPHAGE [Concomitant]
     Dosage: 500 MG, QD
     Route: 048
  27. TRASYLOL [Suspect]
     Indication: AORTIC VALVE REPLACEMENT
     Dosage: 1 ML TEST DOSE
     Route: 042
     Dates: start: 20070118
  28. ZINACEF [Concomitant]
     Dosage: 3 G, UNK
     Route: 042
     Dates: start: 20070118, end: 20070118
  29. INSULIN [Concomitant]
     Dosage: UNK
     Route: 042
     Dates: start: 20070118, end: 20070118
  30. DOPAMINE HCL [Concomitant]
     Dosage: UNK
     Route: 042
     Dates: start: 20070118, end: 20070118
  31. BLOOD CELLS, PACKED HUMAN [Concomitant]
     Dosage: 2 U, UNK
     Route: 042
     Dates: start: 20070118, end: 20070118
  32. PROTAMINE SULFATE [Concomitant]
     Dosage: 450 MG, UNK
  33. REGLAN [Concomitant]
     Dosage: UNK
     Route: 042
     Dates: start: 20070118, end: 20070118
  34. NOVOLIN N [Concomitant]
     Dosage: 100 U, UNK
  35. LEVOPHED [Concomitant]
     Dosage: UNK
     Route: 042
     Dates: start: 20070118, end: 20070118
  36. FOLIC ACID [Concomitant]
     Dosage: 1 MG, QD
     Route: 048
  37. DILANTIN [Concomitant]
     Dosage: 100 MG, TID
  38. DOXEPIN [Concomitant]
     Dosage: 100 MG, QD
     Route: 048
  39. PANTOPRAZOLE [Concomitant]
     Dosage: 40 MG, UNK
     Route: 048

REACTIONS (5)
  - PAIN [None]
  - RENAL FAILURE [None]
  - UNEVALUABLE EVENT [None]
  - RENAL FAILURE ACUTE [None]
  - INJURY [None]
